FAERS Safety Report 15631127 (Version 1)
Quarter: 2018Q4

REPORT INFORMATION
  Report Type: Spontaneous
  Country: US (occurrence: US)
  Receive Date: 20181119
  Receipt Date: 20181119
  Transmission Date: 20190205
  Serious: No
  Sender: FDA-Public Use
  Company Number: US-009507513-1810USA011624

PATIENT
  Age: 64 Year
  Sex: Male

DRUGS (2)
  1. FLUOROURACIL (+) IRINOTECAN HYDROCHLORIDE (+) LEVOLEUCOVORIN CALCIUM ( [Concomitant]
  2. KEYTRUDA [Suspect]
     Active Substance: PEMBROLIZUMAB
     Indication: PANCREATIC CARCINOMA
     Dosage: UNK

REACTIONS (1)
  - Product use in unapproved indication [Unknown]
